FAERS Safety Report 5580108-8 (Version None)
Quarter: 2007Q4

REPORT INFORMATION
  Report Type: 
  Country: None (occurrence: None)
  Receive Date: 20071227
  Receipt Date: 20071227
  Transmission Date: 20080405
  Serious: No
  Sender: FDA-Public Use
  Company Number: None

PATIENT
  Age: 71 Year
  Sex: Female
  Weight: 117.9352 kg

DRUGS (1)
  1. ARANESP [Suspect]
     Indication: ANAEMIA
     Dosage: 100MCG  ONCE Q 2 WEEKS  SQ
     Route: 058
     Dates: start: 20071217, end: 20071226

REACTIONS (6)
  - ASTHENIA [None]
  - DIZZINESS [None]
  - DYSPNOEA [None]
  - FATIGUE [None]
  - NAUSEA [None]
  - SWELLING [None]
